FAERS Safety Report 17768299 (Version 1)
Quarter: 2020Q2

REPORT INFORMATION
  Report Type: Spontaneous
  Country: US (occurrence: US)
  Receive Date: 20200511
  Receipt Date: 20200511
  Transmission Date: 20200714
  Serious: No
  Sender: FDA-Public Use
  Company Number: US-009507513-2005USA002502

PATIENT
  Age: 15 Year
  Sex: Female

DRUGS (2)
  1. IRON (UNSPECIFIED) (+) VITAMINS (UNSPECIFIED) [Concomitant]
     Indication: JUVENILE PAGET^S DISEASE
  2. FOSAMAX [Suspect]
     Active Substance: ALENDRONATE SODIUM
     Indication: JUVENILE PAGET^S DISEASE
     Dosage: 40 MILLIGRAM, QD
     Route: 048
     Dates: start: 2000

REACTIONS (1)
  - Product use issue [Unknown]

NARRATIVE: CASE EVENT DATE: 2000
